FAERS Safety Report 5104956-3 (Version None)
Quarter: 2006Q3

REPORT INFORMATION
  Report Type: 
  Country: None (occurrence: None)
  Receive Date: 20060914
  Receipt Date: 20060901
  Transmission Date: 20061208
  Serious: Yes (Hospitalization, Other)
  Sender: FDA-Public Use
  Company Number: IE-BRISTOL-MYERS SQUIBB COMPANY-13496732

PATIENT
  Age: 65 Year
  Sex: Male

DRUGS (1)
  1. ADCORTYL TAB [Suspect]
     Indication: MUSCULOSKELETAL PAIN
     Dosage: 10ML/ML ITRA-ARTICULAR SINGLE DOSAGE.
     Route: 014

REACTIONS (4)
  - ANGIONEUROTIC OEDEMA [None]
  - DEPRESSED LEVEL OF CONSCIOUSNESS [None]
  - PRURITUS [None]
  - RASH GENERALISED [None]
